FAERS Safety Report 20000235 (Version 3)
Quarter: 2021Q4

REPORT INFORMATION
  Report Type: Spontaneous
  Country: US (occurrence: US)
  Receive Date: 20211026
  Receipt Date: 20211123
  Transmission Date: 20220303
  Serious: Yes (Hospitalization)
  Sender: FDA-Public Use
  Company Number: US-HARMONY BIOSCIENCES-2021HMY01922

PATIENT
  Sex: Male
  Weight: 97.506 kg

DRUGS (16)
  1. WAKIX [Suspect]
     Active Substance: PITOLISANT HYDROCHLORIDE
     Indication: Narcolepsy
     Dosage: 8.9 MG, 1X/DAY UPON AWAKENING
     Route: 048
     Dates: start: 20210922, end: 20210928
  2. WAKIX [Suspect]
     Active Substance: PITOLISANT HYDROCHLORIDE
     Indication: Cataplexy
  3. WAKIX [Suspect]
     Active Substance: PITOLISANT HYDROCHLORIDE
     Indication: Narcolepsy
     Dosage: 17.8 MG, 1X/DAY
     Route: 048
     Dates: start: 20210929, end: 2021
  4. WAKIX [Suspect]
     Active Substance: PITOLISANT HYDROCHLORIDE
     Indication: Cataplexy
     Dosage: 35.6 MG 1X/DAY
     Route: 048
     Dates: start: 2021, end: 20211029
  5. VENLAFAXINE HCL [Concomitant]
     Active Substance: VENLAFAXINE HYDROCHLORIDE
  6. TRAZODONE HCL [Concomitant]
     Active Substance: TRAZODONE HYDROCHLORIDE
  7. LOSARTAN POTASSIUM [Concomitant]
     Active Substance: LOSARTAN POTASSIUM
  8. PANTOPRAZOLE SODIUM [Concomitant]
     Active Substance: PANTOPRAZOLE SODIUM
  9. TAMSULOSIN HYDROCHLORIDE [Concomitant]
     Active Substance: TAMSULOSIN HYDROCHLORIDE
  10. AMPHETAMINE SULFATE [Concomitant]
     Active Substance: AMPHETAMINE SULFATE
  11. ARMODAFINIL [Concomitant]
     Active Substance: ARMODAFINIL
  12. JANUMET [Concomitant]
     Active Substance: METFORMIN HYDROCHLORIDE\SITAGLIPTIN PHOSPHATE
  13. BAYER CHEWABLE ASPIRIN [Concomitant]
  14. VITAMIN B-COMPLEX WITH VIT C [Concomitant]
  15. CALCIUM\VITAMIN D [Concomitant]
     Active Substance: CALCIUM\VITAMIN D
  16. COENZYME Q10 [Concomitant]
     Active Substance: DIETARY SUPPLEMENT\UBIDECARENONE

REACTIONS (15)
  - Chest pain [Recovering/Resolving]
  - Coronary artery occlusion [Recovering/Resolving]
  - Vomiting [Unknown]
  - Dizziness [Not Recovered/Not Resolved]
  - Apathy [Recovering/Resolving]
  - Asthenia [Not Recovered/Not Resolved]
  - Blister [Recovering/Resolving]
  - Skin erosion [Recovering/Resolving]
  - Skin burning sensation [Recovering/Resolving]
  - Scab [Recovering/Resolving]
  - Gait disturbance [Not Recovered/Not Resolved]
  - Somnolence [Unknown]
  - Weight decreased [Recovered/Resolved]
  - Product dose omission issue [Recovered/Resolved]
  - Drug ineffective [Not Recovered/Not Resolved]

NARRATIVE: CASE EVENT DATE: 20210101
